FAERS Safety Report 26125766 (Version 2)
Quarter: 2025Q4

REPORT INFORMATION
  Report Type: Spontaneous
  Country: EU (occurrence: EU)
  Receive Date: 20251205
  Receipt Date: 20251216
  Transmission Date: 20260118
  Serious: Yes (Hospitalization, Other)
  Sender: PFIZER
  Company Number: None

PATIENT
  Age: 55 Year
  Sex: Male
  Weight: 59 kg

DRUGS (5)
  1. LORAZEPAM [Suspect]
     Active Substance: LORAZEPAM
     Indication: Insomnia
     Dosage: 1 MG, DAILY (1 MG, DAILY FOR THE NIGHT)
     Route: 048
     Dates: start: 20251026, end: 20251114
  2. SERTRALINE HYDROCHLORIDE [Suspect]
     Active Substance: SERTRALINE HYDROCHLORIDE
     Indication: Depressed mood
     Dosage: 50 MG, DAILY (50 MG FOR THE MORNING)
     Route: 048
     Dates: start: 20250814, end: 20251114
  3. OLANZAPINE [Suspect]
     Active Substance: OLANZAPINE
     Indication: Agitation
     Dosage: 5 MG, 1X/DAY (5 MG AT NIGHT, WITH THE OPTION OF TAKING A RESCUE DOSE)
     Route: 048
     Dates: start: 20250814, end: 20251101
  4. OLANZAPINE [Suspect]
     Active Substance: OLANZAPINE
     Dosage: 20 MG, 1X/DAY
     Route: 048
     Dates: start: 20251102
  5. LEVOMEPROMAZINE [Suspect]
     Active Substance: LEVOMEPROMAZINE
     Indication: Agitation
     Dosage: 25 ML, AS NEEDED (1 ORAL AMPOULE AT NIGHT)
     Route: 048
     Dates: start: 20251026

REACTIONS (1)
  - Hepatic cytolysis [Recovered/Resolved]

NARRATIVE: CASE EVENT DATE: 20251028
